FAERS Safety Report 6137900-0 (Version None)
Quarter: 2009Q1

REPORT INFORMATION
  Report Type: 
  Country: None (occurrence: None)
  Receive Date: 20090327
  Receipt Date: 20090327
  Transmission Date: 20090719
  Serious: Yes (Life-Threatening)
  Sender: FDA-Public Use
  Company Number: None

PATIENT
  Age: 71 Year
  Sex: Female
  Weight: 72.5755 kg

DRUGS (2)
  1. BIOTIN [Suspect]
     Indication: ALOPECIA
     Dosage: 1 PILL
     Dates: start: 20090214
  2. BIOTIN [Suspect]
     Indication: ALOPECIA
     Dosage: 1 PILL
     Dates: start: 20090215

REACTIONS (4)
  - CHOKING [None]
  - FOREIGN BODY TRAUMA [None]
  - OBSTRUCTION [None]
  - PRODUCT QUALITY ISSUE [None]
